FAERS Safety Report 7500675-4 (Version None)
Quarter: 2011Q2

REPORT INFORMATION
  Report Type: 
  Country: None (occurrence: None)
  Receive Date: 20110524
  Receipt Date: 20110512
  Transmission Date: 20111010
  Serious: Yes (Hospitalization)
  Sender: FDA-Public Use
  Company Number: FR-MERCK-1103FRA00023

PATIENT
  Age: 78 Year
  Sex: Male

DRUGS (6)
  1. METFORMIN [Concomitant]
     Indication: TYPE 2 DIABETES MELLITUS
     Route: 048
  2. ATENOLOL [Concomitant]
     Route: 048
  3. HYDROQUINIDINE HYDROCHLORIDE [Concomitant]
     Route: 065
     Dates: end: 20101101
  4. PROSCAR [Concomitant]
     Route: 048
  5. JANUVIA [Suspect]
     Indication: TYPE 2 DIABETES MELLITUS
     Route: 048
     Dates: start: 20081201, end: 20110204
  6. ASPIRIN LYSINE [Concomitant]
     Route: 048

REACTIONS (2)
  - PANCREATITIS CHRONIC [None]
  - BILIARY DILATATION [None]
